FAERS Safety Report 9296122 (Version 1)
Quarter: 2013Q2

REPORT INFORMATION
  Report Type: Spontaneous
  Country: AU (occurrence: AU)
  Receive Date: 20130517
  Receipt Date: 20130517
  Transmission Date: 20140414
  Serious: Yes (Death)
  Sender: FDA-Public Use
  Company Number: AU-ACTELION-A-CH2013-83220

PATIENT
  Age: 69 Year
  Sex: Male
  Weight: 76 kg

DRUGS (2)
  1. TRACLEER [Suspect]
     Indication: PULMONARY ARTERIAL HYPERTENSION
     Dosage: 125 MG, BID
     Route: 048
     Dates: start: 201112, end: 20130502
  2. TRACLEER [Suspect]
     Dosage: 62.5 MG, BID
     Route: 048
     Dates: start: 20111101, end: 201112

REACTIONS (8)
  - Pulmonary arterial hypertension [Fatal]
  - Disease progression [Fatal]
  - Pulmonary veno-occlusive disease [Fatal]
  - Pericardial effusion [Fatal]
  - Dyspnoea [Fatal]
  - Pleural effusion [Fatal]
  - Oxygen consumption increased [Fatal]
  - Exercise tolerance decreased [Fatal]
